FAERS Safety Report 7412506-1 (Version None)
Quarter: 2011Q2

REPORT INFORMATION
  Report Type: 
  Country: None (occurrence: None)
  Receive Date: 20110413
  Receipt Date: 20110408
  Transmission Date: 20111010
  Serious: Yes (Death, Hospitalization, Other)
  Sender: FDA-Public Use
  Company Number: US-ELI_LILLY_AND_COMPANY-US201103002431

PATIENT
  Sex: Female
  Weight: 58.05 kg

DRUGS (7)
  1. MAGNESIUM [Concomitant]
  2. POTASSIUM [Concomitant]
  3. ALOXI [Concomitant]
  4. DECADRON [Concomitant]
  5. FOLIC ACID [Concomitant]
     Dosage: 1 MG, UNK
     Dates: start: 20110201
  6. ALIMTA [Suspect]
     Indication: PANCREATIC CARCINOMA
     Dosage: 935 MG, EVERY 21 DAYS
     Route: 042
     Dates: start: 20110201, end: 20110222
  7. VITAMIN B-12 [Concomitant]
     Dosage: 1000 UG, UNK
     Route: 030
     Dates: start: 20110201

REACTIONS (6)
  - CARDIAC ARREST [None]
  - ASCITES [None]
  - OFF LABEL USE [None]
  - NEOPLASM MALIGNANT [None]
  - BLOOD POTASSIUM DECREASED [None]
  - RESPIRATORY ARREST [None]
